FAERS Safety Report 4607164-5 (Version None)
Quarter: 2005Q1

REPORT INFORMATION
  Report Type: 
  Country: None (occurrence: None)
  Receive Date: 20050311
  Receipt Date: 20050311
  Transmission Date: 20050727
  Serious: Yes (Hospitalization, Other)
  Sender: FDA-Public Use
  Company Number: None

PATIENT
  Age: 46 Year
  Sex: Female
  Weight: 168.2 kg

DRUGS (5)
  1. TEQUIN [Suspect]
     Dosage: 400MG  IV Q 24 H
     Route: 042
     Dates: start: 20041005, end: 20041014
  2. SOLU-MEDROL [Suspect]
     Dosage: 40 IV Q 6 HRS
     Route: 042
     Dates: start: 20041005, end: 20041017
  3. MAXIPIME [Concomitant]
  4. CLEOCIN [Concomitant]
  5. LANTUS [Concomitant]

REACTIONS (1)
  - HYPERGLYCAEMIA [None]
